FAERS Safety Report 10617843 (Version 2)
Quarter: 2014Q4

REPORT INFORMATION
  Report Type: Report from Study
  Country: US (occurrence: US)
  Receive Date: 20141201
  Receipt Date: 20141201
  Transmission Date: 20150529
  Serious: Yes (Hospitalization)
  Sender: FDA-Public Use
  Company Number: US-SA-2014SA120283

PATIENT
  Age: 53 Year
  Sex: Female

DRUGS (2)
  1. AUBAGIO [Suspect]
     Active Substance: TERIFLUNOMIDE
     Indication: MULTIPLE SCLEROSIS
     Route: 048
     Dates: start: 20140828, end: 20141024
  2. ACTHAR [Concomitant]
     Active Substance: CORTICOTROPIN

REACTIONS (6)
  - Somnolence [Unknown]
  - Sepsis [Unknown]
  - Pneumonia [Unknown]
  - Connective tissue disorder [Unknown]
  - Pain in extremity [Unknown]
  - Gait disturbance [Unknown]
